FAERS Safety Report 6409618-8 (Version None)
Quarter: 2009Q4

REPORT INFORMATION
  Report Type: 
  Country: None (occurrence: None)
  Receive Date: 20091022
  Receipt Date: 20091013
  Transmission Date: 20100525
  Serious: Yes (Other)
  Sender: FDA-Public Use
  Company Number: US-PFIZER INC-2006150810

PATIENT
  Sex: Female

DRUGS (2)
  1. DEPO-PROVERA [Suspect]
     Indication: CONTRACEPTION
     Dosage: UNK
     Route: 030
     Dates: start: 19910101, end: 19960101
  2. LAXATIVES [Concomitant]
     Indication: CONSTIPATION
     Dosage: UNK
     Dates: start: 19960101

REACTIONS (2)
  - ANKLE FRACTURE [None]
  - OSTEOPOROSIS [None]
